FAERS Safety Report 9133943 (Version 9)
Quarter: 2016Q1

REPORT INFORMATION
  Report Type: Spontaneous
  Country: GB (occurrence: GB)
  Receive Date: 20130303
  Receipt Date: 20160323
  Transmission Date: 20160526
  Serious: Yes (Hospitalization, Other)
  Sender: FDA-Public Use
  Company Number: GB-009507513-1302GBR011838

PATIENT
  Sex: Male

DRUGS (8)
  1. ERTAPENEM SODIUM [Suspect]
     Active Substance: ERTAPENEM SODIUM
     Dosage: UNK
     Dates: start: 201011
  2. GENTAMICIN. [Concomitant]
     Active Substance: GENTAMICIN
     Dosage: UNK
     Route: 042
     Dates: start: 20101028
  3. ZYVOX [Suspect]
     Active Substance: LINEZOLID
     Indication: SEPSIS
     Dosage: 600 MG, 2X/DAY
     Route: 048
     Dates: start: 201011, end: 20101215
  4. FLOXACILLIN [Concomitant]
     Active Substance: FLUCLOXACILLIN
     Dosage: UNK
     Route: 042
     Dates: start: 20101028
  5. AMLODIPINE [Concomitant]
     Active Substance: AMLODIPINE BESYLATE
     Dosage: 5 MG, 1X/DAY
     Route: 048
  6. ZYVOX [Suspect]
     Active Substance: LINEZOLID
     Indication: STAPHYLOCOCCAL INFECTION
     Dosage: 600 MG, 2X/DAY
     Route: 048
     Dates: start: 201011
  7. RAMIPRIL. [Concomitant]
     Active Substance: RAMIPRIL
     Indication: HYPERTENSION
     Dosage: UNK
  8. ACETAMINOPHEN. [Concomitant]
     Active Substance: ACETAMINOPHEN
     Dosage: 1 G, 4X/DAY
     Route: 048

REACTIONS (39)
  - Swelling [Unknown]
  - Eye irritation [Recovering/Resolving]
  - Skin depigmentation [Unknown]
  - Headache [Unknown]
  - Renal failure [Not Recovered/Not Resolved]
  - Throat irritation [Not Recovered/Not Resolved]
  - Quality of life decreased [Not Recovered/Not Resolved]
  - Wound complication [Unknown]
  - General physical condition abnormal [Not Recovered/Not Resolved]
  - Incorrect drug administration duration [Unknown]
  - Pallor [Not Recovered/Not Resolved]
  - Fatigue [Not Recovered/Not Resolved]
  - Urinary retention [Not Recovered/Not Resolved]
  - Skin burning sensation [Recovered/Resolved]
  - Tremor [Unknown]
  - Eye irritation [Unknown]
  - Lethargy [Not Recovered/Not Resolved]
  - Tension headache [Not Recovered/Not Resolved]
  - Respiratory disorder [Unknown]
  - Cardiomyopathy [Recovered/Resolved]
  - Abdominal distension [Not Recovered/Not Resolved]
  - Sepsis [Unknown]
  - Dizziness [Not Recovered/Not Resolved]
  - Burning sensation [Unknown]
  - Faeces discoloured [Not Recovered/Not Resolved]
  - Eating disorder [Not Recovered/Not Resolved]
  - Oral candidiasis [Unknown]
  - Syncope [Not Recovered/Not Resolved]
  - Dyspepsia [Not Recovered/Not Resolved]
  - Tachycardia [Not Recovered/Not Resolved]
  - Sleep disorder [Not Recovered/Not Resolved]
  - Amnesia [Unknown]
  - Skin hypopigmentation [Not Recovered/Not Resolved]
  - Anxiety [Not Recovered/Not Resolved]
  - Arrhythmia [Not Recovered/Not Resolved]
  - Tooth discolouration [Recovered/Resolved]
  - Oral discomfort [Recovered/Resolved]
  - Palpitations [Unknown]
  - Nosocomial infection [Unknown]

NARRATIVE: CASE EVENT DATE: 20110108
